FAERS Safety Report 9104424 (Version 2)
Quarter: 2013Q1

REPORT INFORMATION
  Report Type: Spontaneous
  Country: TR (occurrence: TR)
  Receive Date: 20130220
  Receipt Date: 20130225
  Transmission Date: 20140127
  Serious: Yes (Other)
  Sender: FDA-Public Use
  Company Number: TR-ROCHE-1192521

PATIENT
  Age: 25 Year
  Sex: Female

DRUGS (2)
  1. ALTEPLASE [Suspect]
     Indication: CARDIAC VALVE REPLACEMENT COMPLICATION
     Route: 042
  2. ALTEPLASE [Suspect]
     Indication: ISCHAEMIC STROKE

REACTIONS (3)
  - Ischaemic stroke [Unknown]
  - Dysarthria [Unknown]
  - Hemiparesis [Unknown]
